FAERS Safety Report 8766269 (Version 2)
Quarter: 2012Q4

REPORT INFORMATION
  Report Type: 
  Country: DE (occurrence: DE)
  Receive Date: 20120904
  Receipt Date: 20120926
  Transmission Date: 20130627
  Serious: Yes (Hospitalization)
  Sender: FDA-Public Use
  Company Number: DE-ASTRAZENECA-2012SE64566

PATIENT
  Age: 24092 Day
  Sex: Male
  Weight: 90 kg

DRUGS (4)
  1. ATACAND [Suspect]
     Indication: HYPERTENSION
     Route: 048
     Dates: start: 201109
  2. NEUROPLANT [Concomitant]
     Indication: DEPRESSED MOOD
     Dosage: Daily
     Route: 048
     Dates: start: 20120811, end: 20120822
  3. TEBONIN INTENS [Concomitant]
     Indication: VERTIGO
     Route: 048
     Dates: start: 20120213, end: 20120822
  4. CEFASEL [Concomitant]
     Indication: IMMUNE SYSTEM DISORDER
     Route: 048
     Dates: start: 2008

REACTIONS (2)
  - Papilloedema [Recovered/Resolved]
  - Visual acuity reduced [Not Recovered/Not Resolved]
